FAERS Safety Report 5739727-8 (Version None)
Quarter: 2008Q2

REPORT INFORMATION
  Report Type: 
  Country: None (occurrence: None)
  Receive Date: 20080512
  Receipt Date: 20080512
  Transmission Date: 20081010
  Serious: Yes (Death, Hospitalization)
  Sender: FDA-Public Use
  Company Number: None

PATIENT
  Age: 86 Year
  Sex: Male

DRUGS (2)
  1. MORPHINE [Suspect]
     Indication: PAIN
     Dosage: 9MG ONCE IV
     Route: 042
  2. FENTANYL [Suspect]
     Indication: PAIN
     Dosage: 25MCG TOP
     Route: 061

REACTIONS (6)
  - APNOEA [None]
  - CYANOSIS [None]
  - OXYGEN SATURATION DECREASED [None]
  - PULSE ABSENT [None]
  - RESPIRATORY ARREST [None]
  - SOMNOLENCE [None]
